FAERS Safety Report 5732259-2 (Version None)
Quarter: 2008Q2

REPORT INFORMATION
  Report Type: 
  Country: None (occurrence: None)
  Receive Date: 20080508
  Receipt Date: 20080507
  Transmission Date: 20081010
  Serious: Yes (Life-Threatening, Hospitalization)
  Sender: FDA-Public Use
  Company Number: JP-BOEHRINGER INGELHEIM GMBH, GERMANY-2008-BP-05497NB

PATIENT
  Sex: Female
  Weight: 50 kg

DRUGS (8)
  1. MICARDIS [Suspect]
     Indication: HYPERTENSION
     Route: 048
     Dates: start: 20070202, end: 20080131
  2. RENIVACE (ENALAPRIL) [Suspect]
     Indication: HYPERKALAEMIA
     Route: 048
     Dates: end: 20080131
  3. NORVASC [Concomitant]
     Indication: HYPERTENSION
     Route: 048
  4. CONIEL [Concomitant]
     Indication: HYPERTENSION
     Route: 048
  5. CARDENALIN [Concomitant]
     Indication: HYPERTENSION
     Route: 048
  6. SELECTOL [Concomitant]
     Indication: HYPERTENSION
     Route: 048
  7. BUFFERIN [Concomitant]
     Route: 048
  8. OMEPRAL (OMEPRAZOLE) [Concomitant]
     Indication: PROPHYLAXIS
     Route: 048

REACTIONS (2)
  - BRADYCARDIA [None]
  - HYPERKALAEMIA [None]
